FAERS Safety Report 10598076 (Version 2)
Quarter: 2014Q4

REPORT INFORMATION
  Report Type: Spontaneous
  Country: IT (occurrence: IT)
  Receive Date: 20141121
  Receipt Date: 20141203
  Transmission Date: 20150529
  Serious: No
  Sender: FDA-Public Use
  Company Number: IT-JNJFOC-20141105443

PATIENT
  Sex: Female

DRUGS (3)
  1. PALEXIA [Suspect]
     Active Substance: TAPENTADOL HYDROCHLORIDE
     Indication: BACK PAIN
     Dosage: 100 MG COMPRESSE A RILASCIO PROLUNGATO(100 MG IN THE MORNING), AND 50 MG IN THE EVENUNG
     Route: 048
     Dates: start: 201409, end: 201409
  2. PALEXIA [Concomitant]
     Active Substance: TAPENTADOL HYDROCHLORIDE
     Indication: BACK PAIN
     Route: 048
     Dates: start: 201409
  3. PALEXIA [Suspect]
     Active Substance: TAPENTADOL HYDROCHLORIDE
     Indication: BACK PAIN
     Dosage: 50 MG IN THE EVENING
     Route: 048
     Dates: start: 201409, end: 201409

REACTIONS (1)
  - Hypersensitivity [Recovered/Resolved]
